FAERS Safety Report 7333911-8 (Version None)
Quarter: 2011Q1

REPORT INFORMATION
  Report Type: 
  Country: None (occurrence: None)
  Receive Date: 20110307
  Receipt Date: 20110224
  Transmission Date: 20110831
  Serious: Yes (Hospitalization, Other)
  Sender: FDA-Public Use
  Company Number: US-BIOGENIDEC-2010BI043460

PATIENT
  Age: 55 Year
  Sex: Female
  Weight: 53 kg

DRUGS (2)
  1. AVONEX [Suspect]
     Indication: MULTIPLE SCLEROSIS
     Route: 030
     Dates: start: 20100413
  2. BLOOD PRESSURE MEDICAITON (NOS) [Concomitant]
     Indication: HYPERTENSION

REACTIONS (19)
  - HEART RATE DECREASED [None]
  - DYSPNOEA [None]
  - BACK PAIN [None]
  - DYSPEPSIA [None]
  - CONTUSION [None]
  - BLOOD PRESSURE FLUCTUATION [None]
  - HANGOVER [None]
  - HEADACHE [None]
  - CHEST PAIN [None]
  - AORTIC ANEURYSM [None]
  - MIGRAINE [None]
  - MYOCARDIAL INFARCTION [None]
  - ARTHRALGIA [None]
  - HYPOTENSION [None]
  - PAIN [None]
  - OEDEMA PERIPHERAL [None]
  - BLOOD PRESSURE INCREASED [None]
  - FALL [None]
  - APHASIA [None]
